FAERS Safety Report 8141212-3 (Version None)
Quarter: 2012Q1

REPORT INFORMATION
  Report Type: 
  Country: None (occurrence: None)
  Receive Date: 20120216
  Receipt Date: 20120213
  Transmission Date: 20120608
  Serious: Yes (Other)
  Sender: FDA-Public Use
  Company Number: US-PFIZER INC-2011082410

PATIENT
  Sex: Female

DRUGS (3)
  1. TRAZODONE HCL [Suspect]
     Dosage: UNK
  2. LYRICA [Suspect]
     Dosage: UNK
  3. LEVOXYL [Suspect]
     Dosage: UNK
     Route: 048

REACTIONS (6)
  - MYOCLONUS [None]
  - RASH [None]
  - MOTOR DYSFUNCTION [None]
  - MENTAL IMPAIRMENT [None]
  - APHASIA [None]
  - OEDEMA PERIPHERAL [None]
